FAERS Safety Report 11833528 (Version 3)
Quarter: 2020Q4

REPORT INFORMATION
  Report Type: Spontaneous
  Country: US (occurrence: US)
  Receive Date: 20151214
  Receipt Date: 20201229
  Transmission Date: 20210113
  Serious: Yes (Life-Threatening, Disabling)
  Sender: FDA-Public Use
  Company Number: US-009507513-1511USA014671

PATIENT
  Age: 85 Year
  Sex: Female

DRUGS (17)
  1. ZOLPIDEM TARTRATE. [Suspect]
     Active Substance: ZOLPIDEM TARTRATE
     Dosage: UNK
     Dates: start: 2020
  2. BELSOMRA [Suspect]
     Active Substance: SUVOREXANT
     Indication: INSOMNIA
     Dosage: ONCE DAILY
     Route: 048
  3. BELSOMRA [Suspect]
     Active Substance: SUVOREXANT
     Indication: INSOMNIA
     Dosage: 15 MILLIGRAM
     Route: 048
     Dates: start: 201511, end: 201511
  4. CRESTOR [Concomitant]
     Active Substance: ROSUVASTATIN CALCIUM
     Dosage: UNK
  5. OLMESARTAN MEDOXOMIL. [Concomitant]
     Active Substance: OLMESARTAN MEDOXOMIL
  6. BELSOMRA [Suspect]
     Active Substance: SUVOREXANT
     Dosage: DAILY
     Route: 048
     Dates: start: 2000
  7. DILTIAZEM HYDROCHLORIDE. [Concomitant]
     Active Substance: DILTIAZEM HYDROCHLORIDE
     Dosage: UNK
  8. ELIQUIS [Concomitant]
     Active Substance: APIXABAN
     Dosage: UNK
  9. BELSOMRA [Suspect]
     Active Substance: SUVOREXANT
     Dosage: 10 MILLIGRAM, QD (AT 12:30AM)
     Route: 048
     Dates: start: 201511
  10. AMBIEN [Suspect]
     Active Substance: ZOLPIDEM TARTRATE
     Indication: INSOMNIA
     Dosage: UNK
     Route: 048
     Dates: start: 20201019, end: 20201026
  11. VITAMINS (UNSPECIFIED) [Concomitant]
     Active Substance: VITAMINS
     Dosage: UNK
  12. BYSTOLIC [Concomitant]
     Active Substance: NEBIVOLOL HYDROCHLORIDE
  13. FOLIC ACID. [Concomitant]
     Active Substance: FOLIC ACID
  14. BELSOMRA [Suspect]
     Active Substance: SUVOREXANT
     Dosage: HALF 15 MG TABLET
     Route: 048
     Dates: start: 2015, end: 2015
  15. HYDROCHLOROTHIAZIDE. [Concomitant]
     Active Substance: HYDROCHLOROTHIAZIDE
  16. BELSOMRA [Suspect]
     Active Substance: SUVOREXANT
     Dosage: 10MG TABLET BY MOUTH AT BEDTIME AS NEEDED FOR SLEEP
     Dates: start: 202010
  17. CHOLECALCIFEROL [Concomitant]
     Active Substance: CHOLECALCIFEROL

REACTIONS (17)
  - Drug ineffective [Unknown]
  - Therapeutic product effect incomplete [Not Recovered/Not Resolved]
  - Drug ineffective [Not Recovered/Not Resolved]
  - Feeling drunk [Not Recovered/Not Resolved]
  - Wrong technique in product usage process [Unknown]
  - Therapeutic product effect incomplete [Unknown]
  - Feeling abnormal [Unknown]
  - Drug ineffective [Not Recovered/Not Resolved]
  - Circadian rhythm sleep disorder [Unknown]
  - Dizziness [Not Recovered/Not Resolved]
  - Tinnitus [Not Recovered/Not Resolved]
  - Circumstance or information capable of leading to medication error [Unknown]
  - Fatigue [Unknown]
  - Nightmare [Unknown]
  - Somnolence [Unknown]
  - Nightmare [Not Recovered/Not Resolved]
  - Product use issue [Unknown]

NARRATIVE: CASE EVENT DATE: 201511
